FAERS Safety Report 12398265 (Version 3)
Quarter: 2016Q4

REPORT INFORMATION
  Report Type: Report from Study
  Country: IN (occurrence: IN)
  Receive Date: 20160524
  Receipt Date: 20161005
  Transmission Date: 20170207
  Serious: Yes (Other)
  Sender: FDA-Public Use
  Company Number: PHHY2013IN106258

PATIENT
  Age: 53 Year
  Sex: Male

DRUGS (2)
  1. GLIVEC [Suspect]
     Active Substance: IMATINIB MESYLATE
     Dosage: 600 MG, UNK
     Route: 065
  2. GLIVEC [Suspect]
     Active Substance: IMATINIB MESYLATE
     Indication: CHRONIC MYELOID LEUKAEMIA
     Dosage: 400 MG, UNK
     Route: 065

REACTIONS (6)
  - Pain [Unknown]
  - Ligament rupture [Unknown]
  - Malaise [Unknown]
  - Pyrexia [Unknown]
  - Muscle rupture [Unknown]
  - Spondylitis [Unknown]

NARRATIVE: CASE EVENT DATE: 20160926
